FAERS Safety Report 25760809 (Version 2)
Quarter: 2025Q4

REPORT INFORMATION
  Report Type: Report from Study
  Country: US (occurrence: US)
  Receive Date: 20250904
  Receipt Date: 20251128
  Transmission Date: 20260117
  Serious: Yes (Other)
  Sender: RANBAXY
  Company Number: US-SUN PHARMACEUTICAL INDUSTRIES LTD-2025R1-525947

PATIENT
  Age: 78 Year
  Sex: Male

DRUGS (3)
  1. PEMETREXED [Suspect]
     Active Substance: PEMETREXED
     Indication: Central nervous system lymphoma
     Dosage: 6 CYCLES
     Route: 065
  2. TEMOZOLOMIDE [Suspect]
     Active Substance: TEMOZOLOMIDE
     Indication: Central nervous system lymphoma
     Dosage: 6 CYCLES
     Route: 065
  3. RITUXIMAB [Suspect]
     Active Substance: RITUXIMAB
     Indication: Central nervous system lymphoma
     Dosage: 6 CYCLES
     Route: 065

REACTIONS (1)
  - Therapy partial responder [Unknown]
